FAERS Safety Report 4280536-7 (Version None)
Quarter: 2004Q1

REPORT INFORMATION
  Report Type: 
  Country: None (occurrence: None)
  Receive Date: 20040127
  Receipt Date: 20040115
  Transmission Date: 20041129
  Serious: Yes (Other)
  Sender: FDA-Public Use
  Company Number: DEU-2004-0000712

PATIENT
  Age: 38 Year
  Sex: Female

DRUGS (8)
  1. OXYCODONE HCL [Suspect]
     Indication: PAIN
     Dosage: 10 MG, AM, ORAL
     Route: 048
     Dates: start: 20030201
  2. OXYGESIC 20 MG (OXYCODONE HYDROCHLORIDE) CT TABLET [Suspect]
     Indication: PAIN
     Dosage: 20 MG, PM, ORAL
     Route: 048
     Dates: start: 20030201
  3. MORPHINE SULFATE [Suspect]
     Indication: PAIN
  4. BUPRENORPHINE (BUPRENORPHINE) [Suspect]
     Dates: start: 20000101
  5. BUPIVACAINE [Suspect]
     Dates: start: 20000101
  6. CORTICOSTEROIDS [Concomitant]
  7. ANTIBIOTICS [Concomitant]
  8. AMITRIPTYLINE HYDROCHLORIDE [Concomitant]

REACTIONS (3)
  - CONDITION AGGRAVATED [None]
  - TOOTH DISORDER [None]
  - TOOTH LOSS [None]
